FAERS Safety Report 8047632-X (Version None)
Quarter: 2012Q1

REPORT INFORMATION
  Report Type: 
  Country: None (occurrence: None)
  Receive Date: 20120116
  Receipt Date: 20120106
  Transmission Date: 20120608
  Serious: Yes (Hospitalization, Disabling)
  Sender: FDA-Public Use
  Company Number: JP-GLAXOSMITHKLINE-B0774418A

PATIENT
  Sex: Female
  Weight: 56 kg

DRUGS (5)
  1. XELODA [Suspect]
     Dosage: 900MG PER DAY
     Route: 048
     Dates: start: 20110527, end: 20110804
  2. XELODA [Suspect]
     Dosage: 1200MG PER DAY
     Route: 048
     Dates: start: 20110805
  3. LOPERAMIDE HCL [Concomitant]
     Indication: PROPHYLAXIS AGAINST DIARRHOEA
     Route: 048
     Dates: start: 20110406
  4. TYKERB [Suspect]
     Indication: BREAST CANCER
     Dosage: 1250MG PER DAY
     Route: 048
     Dates: start: 20110406
  5. XELODA [Suspect]
     Indication: PRODUCT USED FOR UNKNOWN INDICATION
     Dosage: 1200MG PER DAY
     Route: 048
     Dates: start: 20110406, end: 20110526

REACTIONS (3)
  - PARONYCHIA [None]
  - RASH [None]
  - ULCERATIVE KERATITIS [None]
